FAERS Safety Report 20559894 (Version 2)
Quarter: 2022Q1

REPORT INFORMATION
  Report Type: Spontaneous
  Country: US (occurrence: US)
  Receive Date: 20220307
  Receipt Date: 20220310
  Transmission Date: 20220423
  Serious: No
  Sender: FDA-Public Use
  Company Number: US-NOVARTISTESTPH-NVSC2022US052124

PATIENT

DRUGS (2)
  1. PATADAY [Suspect]
     Active Substance: OLOPATADINE HYDROCHLORIDE
     Indication: Eye pruritus
     Dosage: UNK (OLOPATADINE HCL 0.2%)
     Route: 065
     Dates: start: 20220218
  2. PATADAY [Suspect]
     Active Substance: OLOPATADINE HYDROCHLORIDE
     Dosage: UNK (OLOPATADINE HCL 0.2%)
     Route: 065
     Dates: start: 20220218

REACTIONS (3)
  - Product container issue [Unknown]
  - Drug ineffective [Unknown]
  - Eye pain [Recovered/Resolved]
